FAERS Safety Report 6939471-5 (Version None)
Quarter: 2010Q3

REPORT INFORMATION
  Report Type: 
  Country: None (occurrence: None)
  Receive Date: 20100819
  Receipt Date: 20100806
  Transmission Date: 20110219
  Serious: Yes (Hospitalization)
  Sender: FDA-Public Use
  Company Number: A-CH2010-37870

PATIENT
  Age: 72 Year
  Sex: Female

DRUGS (8)
  1. TRACLEER [Suspect]
     Indication: SKIN ULCER
     Dosage: 125 MG, BID, ORAL
     Route: 048
     Dates: start: 20050101, end: 20100525
  2. RAMIPRIL [Concomitant]
  3. CHRONADALATE (NIFEDIPINE) [Concomitant]
  4. OMEPRAZOLE [Concomitant]
  5. LAMALINE (PARACETAMOL) [Concomitant]
  6. UVEDOSE (COLECALCIFEROL) [Concomitant]
  7. VITAMIN B12 (COBAMAMIDE) [Concomitant]
  8. TARDYFERON (FERROUS SULFATE) [Concomitant]

REACTIONS (4)
  - CYTOLYTIC HEPATITIS [None]
  - HEPATITIS CHOLESTATIC [None]
  - HYPERGAMMAGLOBULINAEMIA [None]
  - LIMB INJURY [None]
